FAERS Safety Report 7091800-0 (Version None)
Quarter: 2010Q4

REPORT INFORMATION
  Report Type: 
  Country: None (occurrence: None)
  Receive Date: 20101101
  Receipt Date: 20101025
  Transmission Date: 20110411
  Serious: Yes (Life-Threatening, Hospitalization, Disabling, Other)
  Sender: FDA-Public Use
  Company Number: 2010SP031857

PATIENT
  Age: 70 Year
  Sex: Male
  Weight: 94.3482 kg

DRUGS (15)
  1. TEMODAR [Suspect]
     Indication: GLIOBLASTOMA
     Dosage: 420 MG; ; PO
     Route: 048
     Dates: start: 20090605, end: 20100405
  2. INVESTIGATIONAL DRUG [Suspect]
     Indication: GLIOBLASTOMA
     Dosage: 0.6 MCG; QM; ID
     Route: 026
     Dates: start: 20090429
  3. SARGRAMOSTIM [Suspect]
     Indication: GLIOBLASTOMA
     Dosage: 0.35 MCG; QM; ID
     Route: 026
     Dates: start: 20090429
  4. ACYCLOVIR [Suspect]
     Indication: URINARY TRACT INFECTION
     Dosage: 800 MG; QD; IV
     Route: 042
     Dates: start: 20100418, end: 20100418
  5. ACYCLOVIR [Suspect]
     Indication: URINARY TRACT INFECTION
     Dosage: 800 MG; QD; IV
     Route: 042
     Dates: start: 20100419, end: 20100420
  6. ACIPHEX [Concomitant]
  7. AVODART [Concomitant]
  8. DEXAMETHASONE [Concomitant]
  9. ENALAPRIL MALEATE [Concomitant]
  10. TAMSULOSIN HYDROCHLORIDE [Concomitant]
  11. KEPPRA [Concomitant]
  12. PROZAC [Concomitant]
  13. VERPAMIL [Concomitant]
  14. ZOFRAN [Concomitant]
  15. LAMOTRIGINE [Concomitant]

REACTIONS (18)
  - BLOOD PH DECREASED [None]
  - BLOOD POTASSIUM DECREASED [None]
  - CARBON DIOXIDE DECREASED [None]
  - CLONUS [None]
  - CSF GLUCOSE INCREASED [None]
  - CSF PROTEIN INCREASED [None]
  - DRUG INEFFECTIVE [None]
  - HAEMATOCRIT DECREASED [None]
  - HAEMOGLOBIN DECREASED [None]
  - HYDROCEPHALUS [None]
  - MENINGITIS [None]
  - MENTAL STATUS CHANGES [None]
  - MUSCLE TWITCHING [None]
  - PLATELET COUNT INCREASED [None]
  - PROTEIN URINE PRESENT [None]
  - RED BLOOD CELLS CSF POSITIVE [None]
  - RENAL FAILURE ACUTE [None]
  - UNRESPONSIVE TO STIMULI [None]
